FAERS Safety Report 9331824 (Version 2)
Quarter: 2013Q2

REPORT INFORMATION
  Report Type: Spontaneous
  Country: FR (occurrence: None)
  Receive Date: 20130603
  Receipt Date: 20130618
  Transmission Date: 20140414
  Serious: Yes (Death, Other)
  Sender: FDA-Public Use
  Company Number: MC201300255

PATIENT
  Age: 76 Year
  Sex: Male

DRUGS (4)
  1. ANGIOMAX, ANGIOX (BIVALIRUDIN) INJECTION [Suspect]
     Route: 042
     Dates: start: 20130419, end: 20130419
  2. PLAVIX (CLOPIDOGREL SULFATE) [Suspect]
     Indication: INFARCTION
     Dates: start: 20130419, end: 20130419
  3. ASPEGIC [Suspect]
     Indication: INFARCTION
     Dates: start: 20130419, end: 20130419
  4. MORPHINE (MORPHINE HYDROCHLORIDE) [Concomitant]

REACTIONS (8)
  - Cardiac arrest [None]
  - Device occlusion [None]
  - Hypotension [None]
  - Bronchial haemorrhage [None]
  - Acute respiratory failure [None]
  - Haemoptysis [None]
  - Hypoxia [None]
  - Procedural complication [None]
